FAERS Safety Report 4623102-3 (Version None)
Quarter: 2005Q1

REPORT INFORMATION
  Report Type: 
  Country: None (occurrence: None)
  Receive Date: 20050328
  Receipt Date: 20050328
  Transmission Date: 20050727
  Serious: Yes (Hospitalization)
  Sender: FDA-Public Use
  Company Number: None

PATIENT
  Sex: Female
  Weight: 57 kg

DRUGS (2)
  1. OLANZAPINE [Suspect]
     Indication: AGITATION
     Dosage: 5MG  QHS + Q6H PRN ORAL
     Route: 048
  2. QUETIAPINE [Suspect]
     Indication: AGITATION
     Dosage: 25MG/50MG  QAM/QHS  ORAL
     Route: 048

REACTIONS (2)
  - ELECTROCARDIOGRAM QT CORRECTED INTERVAL PROLONGED [None]
  - ELECTROCARDIOGRAM T WAVE INVERSION [None]
